FAERS Safety Report 12403842 (Version 1)
Quarter: 2016Q2

REPORT INFORMATION
  Report Type: Spontaneous
  Country: PT (occurrence: PT)
  Receive Date: 20160525
  Receipt Date: 20160525
  Transmission Date: 20160815
  Serious: Yes (Death)
  Sender: FDA-Public Use
  Company Number: PT-ROCHE-1761115

PATIENT
  Age: 74 Year
  Sex: Female

DRUGS (1)
  1. AVASTIN [Suspect]
     Active Substance: BEVACIZUMAB
     Indication: RETINAL DISORDER
     Route: 047
     Dates: start: 20130704

REACTIONS (10)
  - Ocular discomfort [Fatal]
  - Aphasia [Fatal]
  - Confusional state [Fatal]
  - Conjunctival hyperaemia [Fatal]
  - Disorientation [Fatal]
  - Hemiparesis [Fatal]
  - Vomiting [Fatal]
  - Off label use [Fatal]
  - Malaise [Fatal]
  - Brain abscess [Fatal]

NARRATIVE: CASE EVENT DATE: 20130704
